FAERS Safety Report 10923557 (Version 2)
Quarter: 2015Q2

REPORT INFORMATION
  Report Type: Spontaneous
  Country: US (occurrence: US)
  Receive Date: 20150318
  Receipt Date: 20150526
  Transmission Date: 20150821
  Serious: No
  Sender: FDA-Public Use
  Company Number: US-JNJFOC-20121203098

PATIENT

DRUGS (3)
  1. HALOPERIDOL. [Suspect]
     Active Substance: HALOPERIDOL
     Indication: SCHIZOPHRENIA
     Route: 048
  2. RISPERIDONE. [Suspect]
     Active Substance: RISPERIDONE
     Indication: SCHIZOPHRENIA
     Route: 048
  3. ANTICHOLINERGIC [Concomitant]
     Route: 065

REACTIONS (8)
  - Blood prolactin increased [Unknown]
  - Blood triglycerides decreased [Unknown]
  - Weight increased [Unknown]
  - Adverse event [Unknown]
  - Blood triglycerides increased [Unknown]
  - Blood cholesterol increased [Unknown]
  - Blood cholesterol decreased [Unknown]
  - Blood glucose increased [Unknown]
